FAERS Safety Report 21695376 (Version 1)
Quarter: 2022Q4

REPORT INFORMATION
  Report Type: Spontaneous
  Country: BR (occurrence: BR)
  Receive Date: 20221207
  Receipt Date: 20221207
  Transmission Date: 20230113
  Serious: Yes (Other)
  Sender: FDA-Public Use
  Company Number: BR-NAPPMUNDI-GBR-2022-0103287

PATIENT
  Sex: Female
  Weight: 87 kg

DRUGS (5)
  1. BUPRENORPHINE [Suspect]
     Active Substance: BUPRENORPHINE
     Indication: Back pain
     Dosage: 10 UG/H (10 MILLIGRAM)
     Route: 062
     Dates: start: 20221116, end: 20221120
  2. BUPRENORPHINE [Suspect]
     Active Substance: BUPRENORPHINE
     Dosage: 10 UG/H (10 MILLIGRAM) WEEKLY
     Route: 062
     Dates: start: 20221116, end: 20221120
  3. TRAMADOL HYDROCHLORIDE [Concomitant]
     Active Substance: TRAMADOL HYDROCHLORIDE
     Indication: Back pain
     Dosage: 50 MILLIGRAM, TID (3 TIMES A DAY)
  4. NAPROXEN SODIUM [Concomitant]
     Active Substance: NAPROXEN SODIUM
     Indication: Product used for unknown indication
     Dosage: 450 MILLIGRAM, DAILY (ONCE A DAY)
  5. YASMIN [Concomitant]
     Active Substance: DROSPIRENONE\ETHINYL ESTRADIOL
     Indication: Product used for unknown indication
     Dosage: ONCE A DAY

REACTIONS (5)
  - Product contamination microbial [Unknown]
  - Nausea [Recovered/Resolved]
  - Dizziness [Recovered/Resolved]
  - Product adhesion issue [Unknown]
  - Drug ineffective [Unknown]

NARRATIVE: CASE EVENT DATE: 20221116
